FAERS Safety Report 9372125 (Version 3)
Quarter: 2023Q1

REPORT INFORMATION
  Report Type: Spontaneous
  Country: GB (occurrence: GB)
  Receive Date: 20130627
  Receipt Date: 20230207
  Transmission Date: 20230417
  Serious: Yes (Hospitalization, Other)
  Sender: FDA-Public Use
  Company Number: GB-SANOFI-AVENTIS-2013SA062853

PATIENT
  Age: 71 Year
  Sex: Male
  Weight: 92 kg

DRUGS (32)
  1. DRONEDARONE [Suspect]
     Active Substance: DRONEDARONE
     Indication: Atrial fibrillation
     Dosage: 400 MG, BID
  2. SOTALOL HYDROCHLORIDE [Interacting]
     Active Substance: SOTALOL HYDROCHLORIDE
     Indication: Atrial fibrillation
     Dosage: 320 MG,QD
  3. SOTALOL HYDROCHLORIDE [Interacting]
     Active Substance: SOTALOL HYDROCHLORIDE
     Dosage: 80 MG,QD
  4. SOTALOL HYDROCHLORIDE [Interacting]
     Active Substance: SOTALOL HYDROCHLORIDE
     Dosage: 160 MG,QD
  5. SOTALOL HYDROCHLORIDE [Interacting]
     Active Substance: SOTALOL HYDROCHLORIDE
     Dosage: 320 MG,QD
  6. DIGOXIN [Interacting]
     Active Substance: DIGOXIN
     Indication: Atrial fibrillation
     Dosage: 250 UG
  7. DIGOXIN [Interacting]
     Active Substance: DIGOXIN
     Dosage: 125 UG
  8. BISOPROLOL [Concomitant]
     Active Substance: BISOPROLOL
     Indication: Atrial fibrillation
     Dosage: 10 MG,QD
  9. BISOPROLOL [Concomitant]
     Active Substance: BISOPROLOL
     Dosage: REINTRODUCED SLOWLY AND CAUTIOUSLY
  10. ATORVASTATIN [Concomitant]
     Active Substance: ATORVASTATIN
     Indication: Hypercholesterolaemia
     Dosage: 40 MG,QD
  11. ATORVASTATIN [Concomitant]
     Active Substance: ATORVASTATIN
     Dosage: 20 MG, QD
  12. ATORVASTATIN [Concomitant]
     Active Substance: ATORVASTATIN
     Dosage: REINTRODUCED SLOWLY AND CAUTIOUSLY
  13. ALLOPURINOL [Concomitant]
     Active Substance: ALLOPURINOL
     Indication: Gout
     Dosage: 300 MG,QD
  14. ALLOPURINOL [Concomitant]
     Active Substance: ALLOPURINOL
     Dosage: REINTRODUCED SLOWLY AND CAUTIOUSLY
  15. FINASTERIDE [Concomitant]
     Active Substance: FINASTERIDE
     Indication: Product used for unknown indication
     Dosage: 5 MG,QD
  16. FINASTERIDE [Concomitant]
     Active Substance: FINASTERIDE
     Dosage: REINTRODUCED SLOWLY AND CAUTIOUSLY
  17. METFORMIN [Concomitant]
     Active Substance: METFORMIN HYDROCHLORIDE
     Indication: Type 2 diabetes mellitus
     Dosage: 500 MG,QID
  18. METFORMIN [Concomitant]
     Active Substance: METFORMIN HYDROCHLORIDE
     Dosage: REINTRODUCED SLOWLY AND CAUTIOUSLY
  19. POTASSIUM BICARBONATE\SODIUM ALGINATE [Concomitant]
     Active Substance: POTASSIUM BICARBONATE\SODIUM ALGINATE
     Indication: Product used for unknown indication
     Dosage: 10 ML,PRN
  20. POTASSIUM BICARBONATE\SODIUM ALGINATE [Concomitant]
     Active Substance: POTASSIUM BICARBONATE\SODIUM ALGINATE
     Dosage: REINTRODUCED SLOWLY AND CAUTIOUSLY
  21. OMACOR [Concomitant]
     Active Substance: OMEGA-3-ACID ETHYL ESTERS
     Indication: Product used for unknown indication
     Dosage: 1000 MG,QD
  22. OMACOR [Concomitant]
     Active Substance: OMEGA-3-ACID ETHYL ESTERS
     Dosage: REINTRODUCED SLOWLY AND CAUTIOUSLY
  23. CANDESARTAN [Concomitant]
     Active Substance: CANDESARTAN
     Indication: Product used for unknown indication
     Dosage: 32 MG, QD
  24. CANDESARTAN [Concomitant]
     Active Substance: CANDESARTAN
     Dosage: REINTRODUCED SLOWLY AND CAUTIOUSLY
  25. DOXAZOSIN [Concomitant]
     Active Substance: DOXAZOSIN MESYLATE
     Indication: Product used for unknown indication
     Dosage: 4 MG, QD
  26. DOXAZOSIN [Concomitant]
     Active Substance: DOXAZOSIN MESYLATE
     Dosage: REINTRODUCED SLOWLY AND CAUTIOUSLY
  27. SPIRONOLACTONE [Concomitant]
     Active Substance: SPIRONOLACTONE
     Indication: Product used for unknown indication
     Dosage: 5 MG,QD
  28. SPIRONOLACTONE [Concomitant]
     Active Substance: SPIRONOLACTONE
     Dosage: REINTRODUCED SLOWLY AND CAUTIOUSLY
  29. WARFARIN [Concomitant]
     Active Substance: WARFARIN
     Indication: Product used for unknown indication
     Dosage: APPROX 3.75 MG QD (ACCORDING TO INTERNATIONAL NORMALISED RATIO [INR])
  30. WARFARIN [Concomitant]
     Active Substance: WARFARIN
     Dosage: REINTRODUCED SLOWLY AND CAUTIOUSLY
  31. POTASSIUM BICARBONATE\POTASSIUM CHLORIDE [Concomitant]
     Active Substance: POTASSIUM BICARBONATE\POTASSIUM CHLORIDE
     Dosage: 12 MMOL, BID
  32. POTASSIUM BICARBONATE\POTASSIUM CHLORIDE [Concomitant]
     Active Substance: POTASSIUM BICARBONATE\POTASSIUM CHLORIDE
     Dosage: REINTRODUCED SLOWLY AND CAUTIOUSLY

REACTIONS (14)
  - Acute kidney injury [Recovering/Resolving]
  - Oliguria [Recovering/Resolving]
  - Dizziness [Recovering/Resolving]
  - Nausea [Recovering/Resolving]
  - Abdominal pain [Recovering/Resolving]
  - Chromaturia [Recovering/Resolving]
  - Oedema [Recovering/Resolving]
  - Hyperkalaemia [Recovering/Resolving]
  - Diarrhoea [Recovering/Resolving]
  - Xanthopsia [Unknown]
  - Visual impairment [Unknown]
  - Toxicity to various agents [Unknown]
  - International normalised ratio increased [Unknown]
  - Drug interaction [Unknown]
